FAERS Safety Report 5265880-9 (Version None)
Quarter: 2007Q1

REPORT INFORMATION
  Report Type: 
  Country: None (occurrence: None)
  Receive Date: 20070312
  Receipt Date: 20070312
  Transmission Date: 20070707
  Serious: Yes (Other)
  Sender: FDA-Public Use
  Company Number: None

PATIENT
  Age: 45 Year
  Sex: Male
  Weight: 113.3993 kg

DRUGS (2)
  1. VERAPAMIL [Suspect]
     Dosage: 240 MG PO
     Route: 048
     Dates: start: 20070303
  2. TRANDOLAPRIL [Suspect]
     Dosage: 4 MG PO
     Route: 048
     Dates: start: 20070303

REACTIONS (1)
  - BLOOD PRESSURE INCREASED [None]
